FAERS Safety Report 22058980 (Version 1)
Quarter: 2023Q1

REPORT INFORMATION
  Report Type: Report from Study
  Country: US (occurrence: US)
  Receive Date: 20230303
  Receipt Date: 20230303
  Transmission Date: 20230417
  Serious: Yes (Other)
  Sender: FDA-Public Use
  Company Number: US-ABBVIE-4325137

PATIENT
  Sex: Male

DRUGS (1)
  1. LUPRON [Suspect]
     Active Substance: LEUPROLIDE ACETATE
     Indication: Product used for unknown indication
     Route: 065
     Dates: start: 20221001

REACTIONS (4)
  - Radiation injury [Recovering/Resolving]
  - Prostatic specific antigen abnormal [Recovering/Resolving]
  - Diarrhoea [Unknown]
  - Tanning [Unknown]
